FAERS Safety Report 6188023-6 (Version None)
Quarter: 2009Q2

REPORT INFORMATION
  Report Type: 
  Country: None (occurrence: None)
  Receive Date: 20090513
  Receipt Date: 20090504
  Transmission Date: 20091009
  Serious: Yes (Other)
  Sender: FDA-Public Use
  Company Number: PHEH2006US13529

PATIENT
  Sex: Female

DRUGS (6)
  1. ZOMETA [Suspect]
     Indication: MULTIPLE MYELOMA
     Dosage: UNK Q4WK
     Route: 042
     Dates: start: 20030101
  2. AREDIA [Suspect]
  3. CHEMOTHERAPEUTICS,OTHER [Concomitant]
     Dates: start: 20030101
  4. THALIDOMIDE [Concomitant]
  5. DECADRON                                /CAN/ [Concomitant]
  6. NEUPOGEN [Concomitant]

REACTIONS (20)
  - ASTHENIA [None]
  - BONE DISORDER [None]
  - COMPRESSION FRACTURE [None]
  - GINGIVAL DISORDER [None]
  - IMPAIRED HEALING [None]
  - JAW DISORDER [None]
  - MASTICATION DISORDER [None]
  - MOUTH ULCERATION [None]
  - NAUSEA [None]
  - OESOPHAGITIS [None]
  - OSTEONECROSIS [None]
  - OSTEOPENIA [None]
  - OSTEOPOROSIS [None]
  - OVARIAN FAILURE [None]
  - PAIN IN JAW [None]
  - PANCYTOPENIA [None]
  - PYREXIA [None]
  - STEM CELL TRANSPLANT [None]
  - TOOTH EXTRACTION [None]
  - VERTEBROPLASTY [None]
